FAERS Safety Report 21617234 (Version 1)
Quarter: 2022Q4

REPORT INFORMATION
  Report Type: Report from Study
  Country: US (occurrence: US)
  Receive Date: 20221118
  Receipt Date: 20221118
  Transmission Date: 20230113
  Serious: No
  Sender: FDA-Public Use
  Company Number: US-002147023-NVSC2022US257284

PATIENT
  Sex: Female
  Weight: 66.67 kg

DRUGS (1)
  1. COSENTYX [Suspect]
     Active Substance: SECUKINUMAB
     Indication: Psoriasis
     Dosage: UNK (LIQUID)
     Route: 058

REACTIONS (5)
  - Seborrhoeic keratosis [Unknown]
  - COVID-19 [Unknown]
  - Psoriasis [Unknown]
  - Skin exfoliation [Unknown]
  - Pruritus [Unknown]
